FAERS Safety Report 14333785 (Version 3)
Quarter: 2018Q1

REPORT INFORMATION
  Report Type: Spontaneous
  Country: US (occurrence: US)
  Receive Date: 20171228
  Receipt Date: 20180220
  Transmission Date: 20180509
  Serious: Yes (Hospitalization)
  Sender: FDA-Public Use
  Company Number: US-CELGENEUS-USA-20171207178

PATIENT
  Sex: Female
  Weight: 67.2 kg

DRUGS (4)
  1. PEMBROLIZUMAB (MK-3475) [Suspect]
     Active Substance: PEMBROLIZUMAB
     Indication: NEUROENDOCRINE CARCINOMA
     Dosage: 200 MILLIGRAM
     Route: 041
     Dates: start: 20170503
  2. DIPHENOXYLATE/ATROPINE [Concomitant]
     Active Substance: ATROPINE\DIPHENOXYLATE
     Indication: PRODUCT USED FOR UNKNOWN INDICATION
     Route: 065
     Dates: start: 20171013
  3. AZACITIDINE. [Suspect]
     Active Substance: AZACITIDINE
     Indication: NEUROENDOCRINE CARCINOMA
     Dosage: 75 MILLIGRAM
     Route: 041
     Dates: start: 20170503
  4. INCB024360 [Concomitant]
     Active Substance: EPACADOSTAT
     Indication: NEUROENDOCRINE CARCINOMA
     Dosage: 100 MILLIGRAM
     Route: 065
     Dates: start: 20170503, end: 20171117

REACTIONS (2)
  - Nausea [Recovering/Resolving]
  - Vomiting [Recovering/Resolving]

NARRATIVE: CASE EVENT DATE: 20171117
